FAERS Safety Report 7914743-6 (Version None)
Quarter: 2011Q4

REPORT INFORMATION
  Report Type: 
  Country: None (occurrence: None)
  Receive Date: 20111115
  Receipt Date: 20111110
  Transmission Date: 20120403
  Serious: Yes (Death, Other)
  Sender: FDA-Public Use
  Company Number: PHHY2011BR099419

PATIENT
  Sex: Female

DRUGS (2)
  1. SIMVASTATIN [Suspect]
     Dosage: UNK
     Route: 048
  2. EXFORGE [Concomitant]
     Route: 048

REACTIONS (2)
  - DEATH [None]
  - CONSTIPATION [None]
